FAERS Safety Report 6253936-3 (Version None)
Quarter: 2009Q3

REPORT INFORMATION
  Report Type: 
  Country: None (occurrence: None)
  Receive Date: 20090702
  Receipt Date: 20090619
  Transmission Date: 20100115
  Serious: Yes (Hospitalization)
  Sender: FDA-Public Use
  Company Number: PHHO2009DE07901

PATIENT
  Sex: Male

DRUGS (13)
  1. CYCLOSPORINE [Suspect]
     Indication: RENAL TRANSPLANT
     Dosage: 160 MG, BID
     Route: 048
     Dates: start: 20030628, end: 20040203
  2. CYCLOSPORINE [Suspect]
     Dosage: 70 MG, BID
     Route: 048
     Dates: start: 20030204
  3. CYCLOSPORINE [Suspect]
     Dosage: 160 MG, BID
     Route: 048
     Dates: start: 20030628
  4. CYCLOSPORINE [Suspect]
     Dosage: 105 MG TWO SINGLE DOSES
     Route: 048
     Dates: start: 20030630
  5. CYCLOSPORINE [Suspect]
     Dosage: 50 MG, BID
     Route: 048
     Dates: start: 20030701
  6. CYCLOSPORINE [Suspect]
     Dosage: 112.5 MG (TWO SINGLE DOSES)
     Route: 048
     Dates: start: 20030717
  7. CYCLOSPORINE [Suspect]
     Dosage: 125 MG, BID
     Route: 048
     Dates: start: 20030718
  8. CYCLOSPORINE [Suspect]
     Dosage: 110 MG, BID
     Route: 048
     Dates: start: 20030723
  9. CYCLOSPORINE [Suspect]
     Dosage: 80 MG, BID
     Route: 048
     Dates: start: 20040628
  10. PREDNISOLONE [Suspect]
  11. MYCOPHENOLATE MOFETIL [Suspect]
     Dosage: 1 G, BID
     Route: 048
     Dates: start: 20030628, end: 20041201
  12. PANTOZOL [Concomitant]
  13. DACLIZUMAB [Concomitant]

REACTIONS (7)
  - BLOOD CREATININE INCREASED [None]
  - CHOLELITHIASIS [None]
  - CHOLESTASIS [None]
  - CHRONIC ALLOGRAFT NEPHROPATHY [None]
  - HERPES ZOSTER [None]
  - THERAPEUTIC AGENT TOXICITY [None]
  - URETERAL DISORDER [None]
